FAERS Safety Report 4881668-2 (Version None)
Quarter: 2006Q1

REPORT INFORMATION
  Report Type: 
  Country: None (occurrence: None)
  Receive Date: 20060112
  Receipt Date: 20060112
  Transmission Date: 20060701
  Serious: Yes (Life-Threatening)
  Sender: FDA-Public Use
  Company Number: None

PATIENT
  Sex: Male

DRUGS (1)
  1. DROTRECOGIN ALFA 20 MG [Suspect]
     Indication: SEPSIS
     Dosage: 2200 MCG HOUR  IV DRIP
     Route: 041
     Dates: start: 20051111, end: 20051115

REACTIONS (1)
  - GASTROINTESTINAL HAEMORRHAGE [None]
